FAERS Safety Report 15293391 (Version 1)
Quarter: 2018Q3

REPORT INFORMATION
  Report Type: Spontaneous
  Country: HR (occurrence: HR)
  Receive Date: 20180820
  Receipt Date: 20180820
  Transmission Date: 20181010
  Serious: Yes (Hospitalization)
  Sender: FDA-Public Use
  Company Number: HR-TEVA-2018-HR-943966

PATIENT
  Age: 6 Year
  Sex: Female
  Weight: 27 kg

DRUGS (1)
  1. KLAVOCIN BID SIRUP [Suspect]
     Active Substance: AMOXICILLIN\CLAVULANIC ACID
     Indication: TONSILLITIS
     Dosage: 16 ML DAILY; 35 ML; 8 ML EVERY 12 HOURS,LIQUIDS, DRY SUSPENSIONS/SYRUPS/DROPS
     Route: 048
     Dates: start: 20180710, end: 20180716

REACTIONS (2)
  - Blister [Recovering/Resolving]
  - Urticaria [Recovering/Resolving]

NARRATIVE: CASE EVENT DATE: 20180717
